FAERS Safety Report 14690260 (Version 1)
Quarter: 2018Q1

REPORT INFORMATION
  Report Type: Spontaneous
  Country: FR (occurrence: FR)
  Receive Date: 20180328
  Receipt Date: 20180328
  Transmission Date: 20180509
  Serious: Yes (Disabling, Other)
  Sender: FDA-Public Use
  Company Number: FR-TEVA-2018-FR-872514

PATIENT
  Age: 62 Year
  Sex: Male
  Weight: 80 kg

DRUGS (2)
  1. ZOLPIDEM TEVA SANTE 10 MG [Suspect]
     Active Substance: ZOLPIDEM\ZOLPIDEM TARTRATE
     Dosage: 4 DOSAGE FORMS DAILY;
     Route: 065
  2. PREDNISOLONE TEVA 20 MG [Suspect]
     Active Substance: PREDNISOLONE
     Route: 065

REACTIONS (7)
  - Asthmatic crisis [Recovered/Resolved]
  - Mental impairment [Recovered/Resolved]
  - Product packaging confusion [Unknown]
  - Somnolence [Recovered/Resolved]
  - Wrong drug administered [Unknown]
  - Nervousness [Unknown]
  - Self-medication [Unknown]

NARRATIVE: CASE EVENT DATE: 20180311
